FAERS Safety Report 7461592-1 (Version None)
Quarter: 2011Q2

REPORT INFORMATION
  Report Type: 
  Country: None (occurrence: None)
  Receive Date: 20110506
  Receipt Date: 20110422
  Transmission Date: 20111010
  Serious: Yes (Other)
  Sender: FDA-Public Use
  Company Number: CN-JNJFOC-20110501357

PATIENT
  Age: 34 Year
  Sex: Male

DRUGS (1)
  1. SPORANOX [Suspect]
     Indication: ONYCHOMYCOSIS
     Route: 048

REACTIONS (1)
  - PRIAPISM [None]
